FAERS Safety Report 22105060 (Version 3)
Quarter: 2024Q1

REPORT INFORMATION
  Report Type: Spontaneous
  Country: BR (occurrence: BR)
  Receive Date: 20230316
  Receipt Date: 20240312
  Transmission Date: 20240410
  Serious: Yes (Other)
  Sender: FDA-Public Use
  Company Number: BR-ABBOTT-2023A-1360454

PATIENT
  Age: 17 Month
  Sex: Female
  Weight: 13 kg

DRUGS (1)
  1. CLARITHROMYCIN [Suspect]
     Active Substance: CLARITHROMYCIN
     Indication: Secretion discharge
     Dosage: 2,5ML EVERY 8 HOURS DURING 7 DAYS, KLARICID 50 MG/ML
     Route: 048
     Dates: start: 20230130

REACTIONS (6)
  - Hyperpyrexia [Not Recovered/Not Resolved]
  - Pyrexia [Not Recovered/Not Resolved]
  - Chest discomfort [Unknown]
  - Intentional product misuse [Unknown]
  - Off label use [Unknown]
  - Cough [Not Recovered/Not Resolved]

NARRATIVE: CASE EVENT DATE: 20230201
